FAERS Safety Report 5677892-1 (Version None)
Quarter: 2008Q1

REPORT INFORMATION
  Report Type: 
  Country: None (occurrence: None)
  Receive Date: 20080319
  Receipt Date: 20080305
  Transmission Date: 20080703
  Serious: Yes (Hospitalization)
  Sender: FDA-Public Use
  Company Number: 232248J08USA

PATIENT
  Age: 45 Year
  Sex: Female
  Weight: 110.2241 kg

DRUGS (6)
  1. REBIF [Suspect]
     Indication: MULTIPLE SCLEROSIS
     Dosage: 44 MCG, 3 IN 1 WEEKS, SUBCUTANEOUS
     Route: 058
     Dates: start: 20070705
  2. ADVAIR (SERETIDE) [Concomitant]
  3. COMBIVENT (BREVA) [Concomitant]
  4. CELEXA [Concomitant]
  5. LEXAPRO [Concomitant]
  6. FLEXERIL [Concomitant]

REACTIONS (1)
  - CERVIX CARCINOMA [None]
